FAERS Safety Report 8879549 (Version 1)
Quarter: 2012Q4

REPORT INFORMATION
  Report Type: 
  Country: US (occurrence: US)
  Receive Date: 20121101
  Receipt Date: 20121101
  Transmission Date: 20130627
  Serious: No
  Sender: FDA-Public Use
  Company Number: US-B.I. PHARMACEUTICALS,INC./RIDGEFIELD-2012-BP-26754BP

PATIENT
  Sex: Female
  Weight: 75 kg

DRUGS (2)
  1. ZANTAC COOL MINT (TABLETS) [Suspect]
     Indication: DYSPEPSIA
     Route: 048
     Dates: start: 201209
  2. ZANTAC COOL MINT (TABLETS) [Suspect]
     Indication: DYSPEPSIA

REACTIONS (1)
  - Drug effect delayed [Recovered/Resolved]
